FAERS Safety Report 11492587 (Version 1)
Quarter: 2015Q3

REPORT INFORMATION
  Report Type: Spontaneous
  Country: JP (occurrence: JP)
  Receive Date: 20150910
  Receipt Date: 20150910
  Transmission Date: 20151125
  Serious: Yes (Hospitalization)
  Sender: FDA-Public Use
  Company Number: JP-SA-2015SA135205

PATIENT
  Sex: Female

DRUGS (1)
  1. AVAPRO [Suspect]
     Active Substance: IRBESARTAN
     Route: 048

REACTIONS (1)
  - Interstitial lung disease [Recovered/Resolved]
